FAERS Safety Report 4288677-5 (Version None)
Quarter: 2004Q1

REPORT INFORMATION
  Report Type: 
  Country: None (occurrence: None)
  Receive Date: 20040205
  Receipt Date: 20040130
  Transmission Date: 20041129
  Serious: Yes (Hospitalization, Other)
  Sender: FDA-Public Use
  Company Number: 2003184951US

PATIENT
  Age: 70 Year
  Sex: Male

DRUGS (6)
  1. ADRIAMYCIN PFS [Suspect]
     Indication: MULTIPLE MYELOMA
     Dosage: 10 MG/M2, DAY 1-4, IV
     Route: 042
     Dates: start: 20030909, end: 20030912
  2. DELTASONE [Suspect]
     Indication: MULTIPLE MYELOMA
     Dosage: 60 MG/M2, DAY 1-5, ORAL
     Route: 048
     Dates: start: 20030909, end: 20030913
  3. ETOPOSIDE [Suspect]
     Indication: MULTIPLE MYELOMA
     Dosage: 50 MG/M2, DAY 1-4, IV
     Route: 042
     Dates: start: 20030909, end: 20030912
  4. VINCRISTINE [Suspect]
     Indication: MULTIPLE MYELOMA
     Dosage: 0.5 MG, DAY 1-4, IV
     Route: 042
     Dates: start: 20030909, end: 20030912
  5. CYCLOPHOSPHAMIDE [Suspect]
     Indication: MULTIPLE MYELOMA
     Dosage: 750 MG/M2, DAY 5, IV
     Route: 042
     Dates: start: 20030913, end: 20030913
  6. THALIDOMIDE (THALIDOMIDE) [Suspect]
     Indication: MULTIPLE MYELOMA
     Dosage: 400 MG, QD, ORAL

REACTIONS (4)
  - LEUKOPENIA [None]
  - PLATELET COUNT DECREASED [None]
  - PYREXIA [None]
  - UROSEPSIS [None]
